FAERS Safety Report 7401918-8 (Version None)
Quarter: 2011Q2

REPORT INFORMATION
  Report Type: 
  Country: None (occurrence: None)
  Receive Date: 20110408
  Receipt Date: 20110329
  Transmission Date: 20111010
  Serious: Yes (Hospitalization)
  Sender: FDA-Public Use
  Company Number: IT-JNJFOC-20110401766

PATIENT
  Sex: Male

DRUGS (1)
  1. ANTALFEBAL BAMBINI 2% [Suspect]
     Indication: PYREXIA
     Dosage: 2.5 ML/KG BODY WEIGHT
     Route: 048

REACTIONS (1)
  - DEHYDRATION [None]
